FAERS Safety Report 9826241 (Version 1)
Quarter: 2013Q4

REPORT INFORMATION
  Report Type: Spontaneous
  Country: US (occurrence: None)
  Receive Date: 20131223
  Receipt Date: 20131223
  Transmission Date: 20140711
  Serious: Yes (Other)
  Sender: FDA-Public Use
  Company Number: 222049LEO

PATIENT
  Age: 57 Year
  Sex: Male

DRUGS (10)
  1. PICATO [Suspect]
     Indication: ACTINIC KERATOSIS
     Dosage: (1 IN 1 D), TOPICAL
     Route: 061
     Dates: start: 20130515, end: 20130517
  2. MVI [Concomitant]
  3. VIT. D (ERGOCALCIFEROL) [Concomitant]
  4. DEXILANT (DEXLANSOPRAZOLE) [Concomitant]
  5. AVODART (DUTASTERIDE) CAPSULES [Concomitant]
  6. METOPROLOL(METOPROLOL) [Concomitant]
  7. TRAMADOL (TRAMADOL) [Concomitant]
  8. AMOXICILLIN (AMOXICILLIN) [Concomitant]
  9. ZOLPIDEM (ZOLPIDEM) [Concomitant]
  10. ALPRAZOLAM (ALPRAZOLAM) [Concomitant]

REACTIONS (3)
  - Application site dryness [None]
  - Application site swelling [None]
  - Application site exfoliation [None]
